FAERS Safety Report 9759991 (Version 1)
Quarter: 2013Q4

REPORT INFORMATION
  Report Type: Spontaneous
  Country: US (occurrence: US)
  Receive Date: 20131216
  Receipt Date: 20131216
  Transmission Date: 20140711
  Serious: Yes (Other)
  Sender: FDA-Public Use
  Company Number: US-JNJFOC-20131200741

PATIENT
  Sex: Female
  Weight: 72.58 kg

DRUGS (5)
  1. DURAGESIC [Suspect]
     Indication: INTERVERTEBRAL DISC DEGENERATION
     Dosage: 100 UG/HR PATCH X 2
     Route: 062
  2. DURAGESIC [Suspect]
     Indication: INTERVERTEBRAL DISC DEGENERATION
     Dosage: 2*100UG/HR PATCHES
     Route: 062
     Dates: start: 1999
  3. CALCIUM [Concomitant]
     Indication: PRODUCT USED FOR UNKNOWN INDICATION
     Route: 065
  4. VITAMIN D [Concomitant]
     Indication: PRODUCT USED FOR UNKNOWN INDICATION
     Route: 065
  5. ADRENALINE [Concomitant]
     Indication: ADRENAL DISORDER
     Route: 065

REACTIONS (25)
  - Hip fracture [Unknown]
  - Adrenal disorder [Unknown]
  - Osteoporosis [Unknown]
  - Osteonecrosis [Unknown]
  - Body height decreased [Unknown]
  - Cerebrovascular accident [Unknown]
  - Infection [Unknown]
  - Upper limb fracture [Unknown]
  - Rib fracture [Unknown]
  - Spinal fracture [Unknown]
  - Pelvic fracture [Unknown]
  - Foot fracture [Unknown]
  - Humerus fracture [Unknown]
  - Amnesia [Unknown]
  - Withdrawal syndrome [Unknown]
  - Wrong technique in drug usage process [Unknown]
  - Wrong technique in drug usage process [Unknown]
  - Product adhesion issue [Unknown]
  - Product quality issue [Unknown]
  - Drug dose omission [Unknown]
  - Wrong technique in drug usage process [Unknown]
  - Burning sensation [Unknown]
  - Abasia [Unknown]
  - Cough [Unknown]
  - Bedridden [Unknown]
